FAERS Safety Report 7226481-6 (Version None)
Quarter: 2011Q1

REPORT INFORMATION
  Report Type: 
  Country: None (occurrence: None)
  Receive Date: 20110107
  Receipt Date: 20110107
  Transmission Date: 20110831
  Serious: No
  Sender: FDA-Public Use
  Company Number: None

PATIENT
  Age: 4 Year
  Sex: Male
  Weight: 17.6903 kg

DRUGS (1)
  1. SINGULAIR [Suspect]
     Indication: MULTIPLE ALLERGIES
     Dosage: 1 TAB EVERY NIGHT PO (ONE DOSE TAKEN)
     Route: 048
     Dates: start: 20110103

REACTIONS (5)
  - ABNORMAL DREAMS [None]
  - FEAR [None]
  - ENURESIS [None]
  - INAPPROPRIATE AFFECT [None]
  - ABNORMAL BEHAVIOUR [None]
